FAERS Safety Report 16843772 (Version 4)
Quarter: 2020Q3

REPORT INFORMATION
  Report Type: Spontaneous
  Country: US (occurrence: US)
  Receive Date: 20190924
  Receipt Date: 20200702
  Transmission Date: 20201102
  Serious: No
  Sender: FDA-Public Use
  Company Number: US-AMGEN-USASP2019154582

PATIENT
  Age: 62 Year
  Sex: Male
  Weight: 58.96 kg

DRUGS (4)
  1. PROZAC [Concomitant]
     Active Substance: FLUOXETINE HYDROCHLORIDE
     Indication: DEPRESSION
     Dosage: 20 MILLIGRAM, QD (EVERY MORNING)
     Route: 048
  2. PROCRIT [Suspect]
     Active Substance: ERYTHROPOIETIN
     Indication: NEPHROGENIC ANAEMIA
     Dosage: 20,000 UNITS/ML, FREQUENCY DEPENDS UPON HEMOGLOBIN, VARIED FROM ONCE A MONTH TO ONCE IN TWO WEEKS
     Route: 058
     Dates: start: 20171108, end: 20190904
  3. OMEPRAZOLE. [Concomitant]
     Active Substance: OMEPRAZOLE
     Indication: GASTROOESOPHAGEAL REFLUX DISEASE
     Dosage: UNK UNK, QD (EVERY MORNING)
     Route: 048
  4. COLACE [Concomitant]
     Active Substance: DOCUSATE SODIUM
     Indication: CONSTIPATION
     Dosage: 100 MILLIGRAM, 3 TIMES/WK
     Route: 048

REACTIONS (7)
  - Product packaging issue [Unknown]
  - Device issue [Unknown]
  - Haemoglobin decreased [Recovering/Resolving]
  - Urticaria [Recovered/Resolved]
  - Haematuria [Not Recovered/Not Resolved]
  - Blister [Recovered/Resolved]
  - Weight decreased [Recovered/Resolved]

NARRATIVE: CASE EVENT DATE: 2018
